FAERS Safety Report 24540270 (Version 2)
Quarter: 2024Q4

REPORT INFORMATION
  Report Type: Report from Study
  Country: JP (occurrence: JP)
  Receive Date: 20241023
  Receipt Date: 20241028
  Transmission Date: 20250114
  Serious: Yes (Disabling, Other)
  Sender: PFIZER
  Company Number: JP-PFIZER INC-PV202400134281

PATIENT
  Age: 71 Year
  Sex: Male

DRUGS (2)
  1. VORICONAZOLE [Suspect]
     Active Substance: VORICONAZOLE
     Indication: Sinusitis fungal
     Dosage: UNK
  2. VORICONAZOLE [Suspect]
     Active Substance: VORICONAZOLE
     Indication: Aspergillus infection

REACTIONS (2)
  - Drug ineffective [Unknown]
  - Blindness [Unknown]
